FAERS Safety Report 8518618 (Version 2)
Quarter: 2012Q4

REPORT INFORMATION
  Report Type: 
  Country: US (occurrence: US)
  Receive Date: 20120417
  Receipt Date: 20121120
  Transmission Date: 20130627
  Serious: No
  Sender: FDA-Public Use
  Company Number: US-ASTRAZENECA-2012SE11539

PATIENT
  Age: 72 Year
  Sex: Female

DRUGS (3)
  1. NEXIUM [Suspect]
     Route: 048
  2. PRILOSEC OTC [Suspect]
     Route: 048
  3. PREVACID [Concomitant]

REACTIONS (4)
  - Gastrooesophageal reflux disease [Unknown]
  - Oesophagitis [Unknown]
  - Intentional drug misuse [Unknown]
  - Drug ineffective [Unknown]
